FAERS Safety Report 25995955 (Version 3)
Quarter: 2025Q4

REPORT INFORMATION
  Report Type: Report from Study
  Country: US (occurrence: US)
  Receive Date: 20251104
  Receipt Date: 20251118
  Transmission Date: 20260117
  Serious: Yes (Hospitalization)
  Sender: PFIZER
  Company Number: US-PFIZER INC-202500214287

PATIENT
  Age: 16 Month
  Sex: Male

DRUGS (1)
  1. LORBRENA [Suspect]
     Active Substance: LORLATINIB
     Indication: Adrenal gland cancer
     Dosage: 25 MG ONCE DAILY EVERY WEDNESDAY THURSDAY FRIDAY
     Route: 048
     Dates: start: 20250925

REACTIONS (5)
  - Infantile diarrhoea [Recovered/Resolved]
  - Infant irritability [Recovering/Resolving]
  - Middle insomnia [Recovering/Resolving]
  - Off label use [Unknown]
  - Off label use [Unknown]

NARRATIVE: CASE EVENT DATE: 20250901
